FAERS Safety Report 10785230 (Version 1)
Quarter: 2015Q1

REPORT INFORMATION
  Report Type: Spontaneous
  Country: US (occurrence: None)
  Receive Date: 20150209
  Receipt Date: 20150209
  Transmission Date: 20150721
  Serious: Yes (Other)
  Sender: FDA-Public Use
  Company Number: CLINIGEN-003452

PATIENT
  Sex: Male
  Weight: 18.8 kg

DRUGS (3)
  1. FOSCAVIR [Suspect]
     Active Substance: FOSCARNET SODIUM
     Indication: CYTOMEGALOVIRUS CHORIORETINITIS
     Route: 042
     Dates: start: 20140701, end: 20140715
  2. FOSCAVIR [Suspect]
     Active Substance: FOSCARNET SODIUM
     Indication: CYTOMEGALOVIRUS VIRAEMIA
     Route: 042
     Dates: start: 20140701, end: 20140715
  3. FOSCAVIR [Suspect]
     Active Substance: FOSCARNET SODIUM
     Indication: CYTOMEGALOVIRUS TEST POSITIVE
     Route: 042
     Dates: start: 20140701, end: 20140715

REACTIONS (4)
  - Memory impairment [None]
  - Renal impairment [None]
  - Nervous system disorder [None]
  - Condition aggravated [None]
